FAERS Safety Report 24611508 (Version 1)
Quarter: 2024Q4

REPORT INFORMATION
  Report Type: Spontaneous
  Country: CO (occurrence: CO)
  Receive Date: 20241113
  Receipt Date: 20241113
  Transmission Date: 20250115
  Serious: Yes (Other)
  Sender: BRISTOL-MYERS SQUIBB COMPANY
  Company Number: CO-BRISTOL-MYERS SQUIBB COMPANY-2024-176386

PATIENT
  Age: 93 Year
  Sex: Female

DRUGS (1)
  1. ELIQUIS [Suspect]
     Active Substance: APIXABAN
     Indication: Vena cava thrombosis

REACTIONS (4)
  - Thrombosis mesenteric vessel [Unknown]
  - Intestinal ischaemia [Unknown]
  - Suspected counterfeit product [Unknown]
  - Off label use [Unknown]
